FAERS Safety Report 21447364 (Version 1)
Quarter: 2022Q4

REPORT INFORMATION
  Report Type: Report from Study
  Country: US (occurrence: US)
  Receive Date: 20221012
  Receipt Date: 20221012
  Transmission Date: 20230112
  Serious: No
  Sender: FDA-Public Use
  Company Number: US-ABBVIE-4139672

PATIENT
  Sex: Male

DRUGS (4)
  1. HUMIRA [Suspect]
     Active Substance: ADALIMUMAB
     Indication: Product used for unknown indication
     Route: 058
  2. Pfizer/BioNTech [Concomitant]
     Indication: COVID-19 immunisation
     Dosage: FREQUENCY ONCE- FIRST DOSE
     Route: 030
     Dates: start: 20210213, end: 20210213
  3. Pfizer/BioNTech [Concomitant]
     Indication: COVID-19 immunisation
     Dosage: FREQUENCY- ONCE, SECOND DOSE
     Route: 030
     Dates: start: 20210306, end: 20210306
  4. Moderna [Concomitant]
     Indication: COVID-19 immunisation
     Dosage: BOOSTER DOSE- FREQUENCY ONCE- THIRD DOSE
     Route: 030
     Dates: start: 20211202, end: 20211202

REACTIONS (5)
  - Arthralgia [Unknown]
  - Malaise [Not Recovered/Not Resolved]
  - Pain [Unknown]
  - Gastrointestinal pain [Unknown]
  - Nausea [Unknown]
